FAERS Safety Report 23503695 (Version 9)
Quarter: 2025Q3

REPORT INFORMATION
  Report Type: Report from Study
  Country: JP (occurrence: JP)
  Receive Date: 20240209
  Receipt Date: 20250831
  Transmission Date: 20251021
  Serious: Yes (Death, Hospitalization, Other)
  Sender: ABBVIE
  Company Number: JP-TAKEDA-2024TJP002123

PATIENT
  Age: 67 Year
  Sex: Male
  Weight: 54.5 kg

DRUGS (14)
  1. LEUPROLIDE ACETATE [Suspect]
     Active Substance: LEUPROLIDE ACETATE
     Indication: Bulbospinal muscular atrophy congenital
     Dosage: 11.25 MILLIGRAM, Q3MONTHS
     Route: 058
     Dates: start: 20080307, end: 20190430
  2. LEUPROLIDE ACETATE [Suspect]
     Active Substance: LEUPROLIDE ACETATE
  3. ADETPHOS [Concomitant]
     Active Substance: ADENOSINE TRIPHOSPHATE
     Indication: Dizziness
     Dosage: 20 MILLIGRAM, BID
     Route: 048
     Dates: start: 19930409, end: 20190330
  4. ADETPHOS [Concomitant]
     Active Substance: ADENOSINE TRIPHOSPHATE
     Indication: Dizziness
     Route: 065
  5. MAGNESIUM OXIDE [Concomitant]
     Active Substance: MAGNESIUM OXIDE
     Indication: Constipation
     Route: 048
     Dates: start: 20020320, end: 20220615
  6. MAGNESIUM OXIDE [Concomitant]
     Active Substance: MAGNESIUM OXIDE
     Indication: Constipation
     Route: 065
  7. METHYLCOBALAMIN [Concomitant]
     Active Substance: METHYLCOBALAMIN
     Indication: Neuropathy peripheral
     Route: 048
     Dates: start: 19930409, end: 20220615
  8. METHYLCOBALAMIN [Concomitant]
     Active Substance: METHYLCOBALAMIN
     Indication: Neuropathy peripheral
     Route: 065
  9. IFENPRODIL [Concomitant]
     Active Substance: IFENPRODIL
     Indication: Cerebral ischaemia
     Route: 048
     Dates: start: 20101109, end: 20220615
  10. IFENPRODIL [Concomitant]
     Active Substance: IFENPRODIL
     Indication: Cerebral ischaemia
     Route: 065
  11. XTANDI [Concomitant]
     Active Substance: ENZALUTAMIDE
     Indication: Product used for unknown indication
     Route: 065
     Dates: end: 20181108
  12. EDOXABAN TOSYLATE [Concomitant]
     Active Substance: EDOXABAN TOSYLATE
     Indication: Deep vein thrombosis
     Dosage: 30 MILLIGRAM, QD
     Route: 048
     Dates: start: 20211214, end: 20220110
  13. GLYCOSAMINOGLYCANS [Concomitant]
     Active Substance: GLYCOSAMINOGLYCANS
     Indication: Product used for unknown indication
     Route: 065
     Dates: end: 20220615
  14. TELMISARTAN [Concomitant]
     Active Substance: TELMISARTAN
     Indication: Hypertension
     Dosage: UNK UNK, QD
     Route: 048
     Dates: start: 20030724, end: 20220615

REACTIONS (6)
  - Bulbospinal muscular atrophy congenital [Fatal]
  - Asphyxia [Fatal]
  - Prostate cancer [Fatal]
  - Metastases to pleura [Fatal]
  - Sudden death [Fatal]
  - Prostate cancer recurrent [Fatal]

NARRATIVE: CASE EVENT DATE: 20150501
